FAERS Safety Report 13259953 (Version 1)
Quarter: 2017Q1

REPORT INFORMATION
  Report Type: Spontaneous
  Country: AU (occurrence: AU)
  Receive Date: 20170222
  Receipt Date: 20170222
  Transmission Date: 20170428
  Serious: Yes (Death, Other)
  Sender: FDA-Public Use
  Company Number: AU-JNJFOC-20170220539

PATIENT
  Age: 51 Year
  Sex: Female

DRUGS (2)
  1. KETOCONAZOLE. [Suspect]
     Active Substance: KETOCONAZOLE
     Indication: CUSHING^S SYNDROME
     Route: 065
  2. SPIRONOLACTONE. [Suspect]
     Active Substance: SPIRONOLACTONE
     Indication: CUSHING^S SYNDROME
     Route: 065

REACTIONS (3)
  - Off label use [Unknown]
  - Pneumocystis jirovecii pneumonia [Fatal]
  - Product use issue [Unknown]
